FAERS Safety Report 5032764-0 (Version None)
Quarter: 2006Q2

REPORT INFORMATION
  Report Type: 
  Country: None (occurrence: None)
  Receive Date: 20060622
  Receipt Date: 20060615
  Transmission Date: 20061013
  Serious: Yes (Hospitalization)
  Sender: FDA-Public Use
  Company Number: US-BRISTOL-MYERS SQUIBB COMPANY-13413273

PATIENT
  Age: 41 Year
  Sex: Male
  Weight: 126 kg

DRUGS (3)
  1. ERBITUX [Suspect]
     Indication: SQUAMOUS CELL CARCINOMA
     Route: 042
     Dates: start: 20060605, end: 20060605
  2. DOCETAXEL [Suspect]
     Indication: SQUAMOUS CELL CARCINOMA
     Route: 042
     Dates: start: 20060605, end: 20060605
  3. RADIATION THERAPY [Suspect]
     Indication: SQUAMOUS CELL CARCINOMA
     Dates: start: 20060609, end: 20060609

REACTIONS (1)
  - STOMATITIS [None]
